FAERS Safety Report 11061635 (Version 1)
Quarter: 2015Q2

REPORT INFORMATION
  Report Type: Spontaneous
  Country: US (occurrence: None)
  Receive Date: 20150422
  Receipt Date: 20150422
  Transmission Date: 20150821
  Serious: Yes (Hospitalization)
  Sender: FDA-Public Use
  Company Number: 2015AP008117

PATIENT
  Age: 11 Year
  Sex: Male
  Weight: 37 kg

DRUGS (9)
  1. PENICILLIN VK (PHENOXYMETHYLPENICILLIN POTASSIUM) [Concomitant]
  2. OXYCODONE [Concomitant]
     Active Substance: OXYCODONE
  3. FERRIPROX [Suspect]
     Active Substance: DEFERIPRONE
     Indication: SICKLE CELL ANAEMIA
     Route: 048
     Dates: start: 20150107
  4. HYDROXYUREA (HYDROXYCARBAMIDE) [Concomitant]
     Active Substance: HYDROXYUREA
  5. FOLIC ACID. [Concomitant]
     Active Substance: FOLIC ACID
  6. ZYRTEC [Concomitant]
     Active Substance: CETIRIZINE HYDROCHLORIDE
  7. MS CONTIN (MORPHINE SULFATE) [Concomitant]
  8. FERRIPROX [Suspect]
     Active Substance: DEFERIPRONE
     Indication: HAEMOCHROMATOSIS
     Route: 048
     Dates: start: 20150107
  9. IBUPROFEN. [Concomitant]
     Active Substance: IBUPROFEN

REACTIONS (2)
  - Respiratory tract infection [None]
  - White blood cell count decreased [None]

NARRATIVE: CASE EVENT DATE: 20150404
